FAERS Safety Report 9300213 (Version 6)
Quarter: 2014Q1

REPORT INFORMATION
  Report Type: Report from Study
  Country: CA (occurrence: CA)
  Receive Date: 20130521
  Receipt Date: 20140322
  Transmission Date: 20141002
  Serious: Yes (Death, Hospitalization, Other)
  Sender: FDA-Public Use
  Company Number: PHHY2013CA043046

PATIENT
  Age: 52 Year
  Sex: Male

DRUGS (1)
  1. SANDOSTATIN LAR [Suspect]
     Indication: ILEOSTOMY
     Dosage: 30 MG, ONCE A MONTH
     Route: 030
     Dates: start: 20130423, end: 20131004

REACTIONS (8)
  - Death [Fatal]
  - Upper limb fracture [Unknown]
  - General physical health deterioration [Not Recovered/Not Resolved]
  - Gastrointestinal stoma complication [Unknown]
  - Gastrointestinal cancer metastatic [Not Recovered/Not Resolved]
  - Pain [Unknown]
  - Malaise [Unknown]
  - Injection site pain [Unknown]
